FAERS Safety Report 5236872-0 (Version None)
Quarter: 2007Q1

REPORT INFORMATION
  Report Type: 
  Country: None (occurrence: None)
  Receive Date: 20070213
  Receipt Date: 20060104
  Transmission Date: 20070707
  Serious: No
  Sender: FDA-Public Use
  Company Number: US-BRISTOL-MYERS SQUIBB COMPANY-13236138

PATIENT
  Age: 74 Year
  Sex: Female
  Weight: 77 kg

DRUGS (5)
  1. KENALOG [Suspect]
     Indication: ECZEMA
  2. KENALOG [Suspect]
     Indication: RASH
  3. ACLOVATE [Concomitant]
  4. BETAMETHASONE [Concomitant]
  5. FLUOCIM [Concomitant]

REACTIONS (3)
  - BURNING SENSATION [None]
  - DRUG INEFFECTIVE [None]
  - RASH PRURITIC [None]
